FAERS Safety Report 16106556 (Version 1)
Quarter: 2019Q1

REPORT INFORMATION
  Report Type: Spontaneous
  Country: US (occurrence: US)
  Receive Date: 20190322
  Receipt Date: 20190322
  Transmission Date: 20190418
  Serious: Yes (Hospitalization)
  Sender: FDA-Public Use
  Company Number: US-TEVA-2019-US-1025891

PATIENT
  Sex: Female

DRUGS (2)
  1. ESTRADIOL VAGINAL INSERTS [Suspect]
     Active Substance: ESTRADIOL
     Dosage: DAILY USE
     Route: 065
     Dates: start: 201903
  2. ESTRADIOL VAGINAL INSERTS [Suspect]
     Active Substance: ESTRADIOL
     Dosage: DAILY USE
     Route: 065
     Dates: start: 20190304

REACTIONS (5)
  - Erythema [Unknown]
  - Pruritus [Unknown]
  - Rash macular [Unknown]
  - Product dose omission [Unknown]
  - Urticaria [Unknown]

NARRATIVE: CASE EVENT DATE: 20190309
